FAERS Safety Report 11806807 (Version 2)
Quarter: 2016Q4

REPORT INFORMATION
  Report Type: Spontaneous
  Country: US (occurrence: US)
  Receive Date: 20151207
  Receipt Date: 20161129
  Transmission Date: 20170206
  Serious: No
  Sender: FDA-Public Use
  Company Number: US-ENDO PHARMACEUTICALS INC.-2015-002915

PATIENT
  Age: 73 Year
  Sex: Male
  Weight: 74.91 kg

DRUGS (3)
  1. CLOPIDOGREL-APOTEX [Concomitant]
     Indication: VASCULAR GRAFT
  2. TESTIM [Suspect]
     Active Substance: TESTOSTERONE
     Indication: BLOOD TESTOSTERONE DECREASED
     Route: 061
     Dates: start: 20150827, end: 20150913
  3. FRANKINCENSE AND MYRRH [Concomitant]
     Indication: NEUROPATHY PERIPHERAL

REACTIONS (1)
  - Peripheral swelling [Recovering/Resolving]

NARRATIVE: CASE EVENT DATE: 20150830
